FAERS Safety Report 4942693-6 (Version None)
Quarter: 2006Q1

REPORT INFORMATION
  Report Type: 
  Country: None (occurrence: None)
  Receive Date: 20060309
  Receipt Date: 20060227
  Transmission Date: 20060701
  Serious: Yes (Hospitalization)
  Sender: FDA-Public Use
  Company Number: GXKR2006GB01233

PATIENT
  Age: 78 Year
  Sex: Male

DRUGS (6)
  1. OMEPRAZOLE [Suspect]
     Dosage: 40 MG, QD, ORAL
     Route: 048
     Dates: end: 20060124
  2. FUROSEMIDE [Suspect]
     Dosage: 20 MG, QD, ORAL
     Route: 048
     Dates: end: 20060124
  3. GLICLAZIDE (GLICLAZIDE) [Concomitant]
  4. METFORMIN HCL [Concomitant]
  5. ENALAPRIL MALEATE [Concomitant]
  6. FERROUS SULPHATE (FERROUS SULPHATE) [Concomitant]

REACTIONS (2)
  - BLOOD SODIUM DECREASED [None]
  - FALL [None]
